FAERS Safety Report 14701048 (Version 1)
Quarter: 2018Q1

REPORT INFORMATION
  Report Type: Report from Study
  Country: None (occurrence: GB)
  Receive Date: 20180330
  Receipt Date: 20180330
  Transmission Date: 20180509
  Serious: Yes (Hospitalization, Other)
  Sender: FDA-Public Use
  Company Number: GB-BAUSCH-BL-2018-007985

PATIENT
  Age: 67 Year
  Sex: Female

DRUGS (4)
  1. PENICILLIN V [Suspect]
     Active Substance: PENICILLIN V
     Indication: SKIN GRAFT
     Route: 065
  2. ERYTHROMYCIN. [Suspect]
     Active Substance: ERYTHROMYCIN
     Indication: SKIN GRAFT
     Route: 065
  3. AMPICILLIN [Suspect]
     Active Substance: AMPICILLIN
     Indication: SKIN GRAFT
     Route: 065
  4. CLINDAMYCIN PHOSPHATE. [Suspect]
     Active Substance: CLINDAMYCIN PHOSPHATE
     Indication: SKIN GRAFT
     Route: 065

REACTIONS (1)
  - Pseudomembranous colitis [Recovered/Resolved]
